FAERS Safety Report 21755981 (Version 3)
Quarter: 2023Q1

REPORT INFORMATION
  Report Type: Report from Study
  Country: CA (occurrence: CA)
  Receive Date: 20221220
  Receipt Date: 20230117
  Transmission Date: 20230418
  Serious: Yes (Hospitalization)
  Sender: FDA-Public Use
  Company Number: CA-MYLANLABS-2022M1144881

PATIENT
  Age: 63 Year
  Sex: Female
  Weight: 43.5 kg

DRUGS (1)
  1. OGIVRI [Suspect]
     Active Substance: TRASTUZUMAB-DKST
     Indication: Breast cancer metastatic
     Dosage: 283.5 MILLIGRAM, Q3W
     Route: 042
     Dates: start: 20220830

REACTIONS (4)
  - Urinary tract infection [Unknown]
  - Hypotension [Recovered/Resolved]
  - Product dose omission issue [Unknown]
  - Weight decreased [Unknown]

NARRATIVE: CASE EVENT DATE: 20230106
